FAERS Safety Report 6498305-6 (Version None)
Quarter: 2009Q4

REPORT INFORMATION
  Report Type: 
  Country: None (occurrence: None)
  Receive Date: 20091125
  Receipt Date: 20090812
  Transmission Date: 20100525
  Serious: Yes (Other)
  Sender: FDA-Public Use
  Company Number: 2009BH010531

PATIENT
  Age: 71 Year
  Sex: Male

DRUGS (3)
  1. DIANEAL [Suspect]
     Indication: PERITONEAL DIALYSIS
     Dosage: 10 L ; EVERY DAY ; IP
     Route: 033
     Dates: start: 20070101
  2. DIANEAL [Suspect]
     Indication: PERITONEAL DIALYSIS
     Dosage: 10 L ; EVERY DAY ; IP
     Route: 033
     Dates: start: 20071207
  3. EXTRANEAL [Suspect]
     Indication: PERITONEAL DIALYSIS
     Dosage: 2 L ; EVERY DAY ; IP
     Route: 033
     Dates: start: 20071207

REACTIONS (5)
  - ABDOMINAL DISTENSION [None]
  - CATHETER SITE INFECTION [None]
  - MALAISE [None]
  - PERITONEAL DIALYSIS COMPLICATION [None]
  - PERITONITIS BACTERIAL [None]
